FAERS Safety Report 21541847 (Version 1)
Quarter: 2022Q4

REPORT INFORMATION
  Report Type: Spontaneous
  Country: CN (occurrence: CN)
  Receive Date: 20221102
  Receipt Date: 20221102
  Transmission Date: 20230113
  Serious: Yes (Other)
  Sender: FDA-Public Use
  Company Number: None

PATIENT
  Age: 64 Year
  Sex: Female
  Weight: 55 kg

DRUGS (6)
  1. CYCLOPHOSPHAMIDE [Suspect]
     Active Substance: CYCLOPHOSPHAMIDE
     Indication: Breast cancer female
     Dosage: 0.8 G, QD, DILUTED WITH 0.9% SODIUM CHLORIDE 100 ML, FIRST CHEMOTHERAPY WITH AC REGIMEN
     Route: 041
     Dates: start: 20221007, end: 20221007
  2. CYCLOPHOSPHAMIDE [Suspect]
     Active Substance: CYCLOPHOSPHAMIDE
     Indication: Chemotherapy
  3. SODIUM CHLORIDE [Suspect]
     Active Substance: SODIUM CHLORIDE
     Indication: Medication dilution
     Dosage: 100 ML, QD, USED TO DILUTE 0.8G CYCLOPHOSPHAMIDE, FIRST CHEMOTHERAPY WITH AC REGIMEN
     Route: 041
     Dates: start: 20221007, end: 20221007
  4. SODIUM CHLORIDE [Suspect]
     Active Substance: SODIUM CHLORIDE
     Dosage: 100 ML, QD, USED TO DILUTE 140 MG EPIRUBICIN HYDROCHLORIDE, FIRST CHEMOTHERAPY WITH AC REGIMEN
     Route: 041
     Dates: start: 20221007, end: 20221007
  5. EPIRUBICIN HYDROCHLORIDE [Suspect]
     Active Substance: EPIRUBICIN HYDROCHLORIDE
     Indication: Breast cancer female
     Dosage: 140 MG, QD, DILUTED WITH 0.9% SODIUM CHLORIDE 100 ML, FIRST CHEMOTHERAPY WITH AC REGIMEN
     Route: 041
     Dates: start: 20221007, end: 20221007
  6. EPIRUBICIN HYDROCHLORIDE [Suspect]
     Active Substance: EPIRUBICIN HYDROCHLORIDE
     Indication: Chemotherapy

REACTIONS (2)
  - White blood cell count decreased [Recovering/Resolving]
  - Neutrophil count decreased [Recovering/Resolving]

NARRATIVE: CASE EVENT DATE: 20221017
